FAERS Safety Report 16495997 (Version 2)
Quarter: 2019Q3

REPORT INFORMATION
  Report Type: Spontaneous
  Country: US (occurrence: US)
  Receive Date: 20190628
  Receipt Date: 20190715
  Transmission Date: 20191004
  Serious: Yes (Hospitalization)
  Sender: FDA-Public Use
  Company Number: US-NOVOPROD-669410

PATIENT
  Age: 77 Year
  Sex: Male

DRUGS (2)
  1. LEVEMIR [Suspect]
     Active Substance: INSULIN DETEMIR
     Indication: DIABETES MELLITUS
     Dosage: 24 IU, BID
     Route: 058
     Dates: start: 2019
  2. LEVEMIR [Suspect]
     Active Substance: INSULIN DETEMIR
     Dosage: 24 IU, BID
     Route: 058
     Dates: start: 2019

REACTIONS (1)
  - Respiration abnormal [Unknown]
